FAERS Safety Report 6828070-1 (Version None)
Quarter: 2010Q3

REPORT INFORMATION
  Report Type: 
  Country: None (occurrence: None)
  Receive Date: 20100709
  Receipt Date: 20100706
  Transmission Date: 20110219
  Serious: Yes (Other)
  Sender: FDA-Public Use
  Company Number: D0060941A

PATIENT
  Sex: Female

DRUGS (3)
  1. REQUIP [Suspect]
     Dosage: 2.5MG THREE TIMES PER DAY
     Route: 048
  2. SELEGILIN [Suspect]
     Dosage: 10MG IN THE MORNING
     Route: 065
  3. LEVODOPA [Suspect]
     Dosage: 50MG FOUR TIMES PER DAY
     Route: 065

REACTIONS (14)
  - ABDOMINAL PAIN UPPER [None]
  - BLOOD PRESSURE INCREASED [None]
  - CONDITION AGGRAVATED [None]
  - COUGH [None]
  - DYSPNOEA [None]
  - DYSTONIA [None]
  - ERYTHEMA [None]
  - FATIGUE [None]
  - GENERALISED OEDEMA [None]
  - HEADACHE [None]
  - HEART RATE INCREASED [None]
  - HEPATIC FUNCTION ABNORMAL [None]
  - SUDDEN ONSET OF SLEEP [None]
  - WHITE BLOOD CELL COUNT DECREASED [None]
